FAERS Safety Report 13372330 (Version 1)
Quarter: 2017Q1

REPORT INFORMATION
  Report Type: Spontaneous
  Country: US (occurrence: US)
  Receive Date: 20170324
  Receipt Date: 20170324
  Transmission Date: 20170429
  Serious: Yes (Hospitalization, Disabling)
  Sender: FDA-Public Use
  Company Number: None

PATIENT
  Age: 61 Year
  Sex: Female
  Weight: 68.95 kg

DRUGS (4)
  1. VITAFUSION WOMEN^S COMPLETE MULTIVITAMIN [Concomitant]
  2. LISINOPRIL, SUBSTITUTE TO PRINIVIL [Suspect]
     Active Substance: LISINOPRIL
     Indication: HYPERTENSION
     Dosage: DOSAGE AMOUNT - BEFORE 10MG WAS ONE WHEN INCREASED IT WAS 35MG, ONCE A DAY
     Dates: start: 20161207, end: 20161227
  3. CARVEDILOL. [Concomitant]
     Active Substance: CARVEDILOL
  4. HYDROXYZINE PAM [Concomitant]
     Active Substance: HYDROXYZINE PAMOATE

REACTIONS (1)
  - Respiration abnormal [None]

NARRATIVE: CASE EVENT DATE: 20161227
